FAERS Safety Report 6221092-3 (Version None)
Quarter: 2009Q2

REPORT INFORMATION
  Report Type: 
  Country: None (occurrence: None)
  Receive Date: 20090610
  Receipt Date: 20090601
  Transmission Date: 20091009
  Serious: Yes (Other)
  Sender: FDA-Public Use
  Company Number: B0569288A

PATIENT
  Sex: Male

DRUGS (4)
  1. RELENZA [Suspect]
     Indication: INFLUENZA
     Dosage: 10MG TWICE PER DAY
     Route: 055
     Dates: start: 20090405, end: 20090405
  2. CEFALEXIN [Concomitant]
     Indication: PHARYNGITIS
     Dosage: 250MG THREE TIMES PER DAY
     Route: 048
     Dates: start: 20090404, end: 20090405
  3. EMPYNASE P [Concomitant]
     Indication: PHARYNGITIS
     Dosage: 27Z THREE TIMES PER DAY
     Route: 048
     Dates: start: 20090404
  4. CALONAL [Concomitant]
     Indication: PHARYNGITIS
     Route: 048
     Dates: start: 20090404

REACTIONS (3)
  - BODY TEMPERATURE INCREASED [None]
  - LOSS OF CONSCIOUSNESS [None]
  - VISUAL IMPAIRMENT [None]
